FAERS Safety Report 25379988 (Version 2)
Quarter: 2025Q2

REPORT INFORMATION
  Report Type: Spontaneous
  Country: US (occurrence: US)
  Receive Date: 20250530
  Receipt Date: 20250605
  Transmission Date: 20250717
  Serious: No
  Sender: LUPIN
  Company Number: US-LUPIN PHARMACEUTICALS INC.-2025-04388

PATIENT
  Age: 67 Year
  Weight: 61.224 kg

DRUGS (3)
  1. ALBUTEROL SULFATE [Suspect]
     Active Substance: ALBUTEROL SULFATE
     Indication: Chronic obstructive pulmonary disease
  2. ALBUTEROL SULFATE [Suspect]
     Active Substance: ALBUTEROL SULFATE
  3. WARFARIN [Concomitant]
     Active Substance: WARFARIN
     Indication: Cerebrovascular accident
     Route: 065

REACTIONS (2)
  - Wrong technique in product usage process [Unknown]
  - No adverse event [Unknown]
